FAERS Safety Report 21962261 (Version 1)
Quarter: 2023Q1

REPORT INFORMATION
  Report Type: Spontaneous
  Country: US (occurrence: US)
  Receive Date: 20230207
  Receipt Date: 20230207
  Transmission Date: 20230418
  Serious: Yes (Death, Other)
  Sender: FDA-Public Use
  Company Number: US-BRISTOL-MYERS SQUIBB COMPANY-2023-016734

PATIENT
  Age: 77 Year
  Sex: Male
  Weight: 68.95 kg

DRUGS (1)
  1. REBLOZYL [Suspect]
     Active Substance: LUSPATERCEPT-AAMT
     Indication: Myelodysplastic syndrome
     Dosage: FREQ : ^EVERY 28 DAYS^
     Dates: start: 2022

REACTIONS (2)
  - Death [Fatal]
  - Intentional product use issue [Unknown]
